FAERS Safety Report 4269471-8 (Version None)
Quarter: 2004Q1

REPORT INFORMATION
  Report Type: 
  Country: None (occurrence: None)
  Receive Date: 20040113
  Receipt Date: 20031204
  Transmission Date: 20041129
  Serious: Yes (Life-Threatening, Hospitalization)
  Sender: FDA-Public Use
  Company Number: US-ROCHE-353422

PATIENT
  Age: 51 Year
  Sex: Male
  Weight: 104.3 kg

DRUGS (3)
  1. PEGASYS [Suspect]
     Indication: HEPATITIS C
     Route: 058
     Dates: start: 20031120, end: 20031202
  2. COPEGUS [Suspect]
     Indication: DRUG USE FOR UNKNOWN INDICATION
     Route: 048
  3. COPEGUS [Suspect]
     Route: 048
     Dates: start: 20031120, end: 20031202

REACTIONS (3)
  - HAEMATURIA [None]
  - HAEMODIALYSIS [None]
  - RENAL TUBULAR NECROSIS [None]
